FAERS Safety Report 23744555 (Version 1)
Quarter: 2024Q2

REPORT INFORMATION
  Report Type: Spontaneous
  Country: DE (occurrence: DE)
  Receive Date: 20240415
  Receipt Date: 20240415
  Transmission Date: 20240716
  Serious: Yes (Other)
  Sender: FDA-Public Use
  Company Number: None

PATIENT
  Age: 67 Year
  Sex: Female

DRUGS (1)
  1. NITROFURANTOIN [Suspect]
     Active Substance: NITROFURANTOIN
     Indication: Urinary tract infection
     Route: 048
     Dates: start: 202306, end: 202402

REACTIONS (4)
  - Hepatic cirrhosis [Not Recovered/Not Resolved]
  - Hyponatraemia [Unknown]
  - Liver injury [Not Recovered/Not Resolved]
  - Hypervolaemia [Unknown]

NARRATIVE: CASE EVENT DATE: 20240301
